FAERS Safety Report 8925283 (Version 1)
Quarter: 2012Q4

REPORT INFORMATION
  Report Type: 
  Country: GB (occurrence: GB)
  Receive Date: 20121126
  Receipt Date: 20121126
  Transmission Date: 20130627
  Serious: Yes (Hospitalization)
  Sender: FDA-Public Use
  Company Number: GB-PFIZER INC-2012290431

PATIENT
  Age: 33 Year
  Sex: Male

DRUGS (10)
  1. PREGABALIN [Suspect]
     Indication: BACK PAIN
     Dosage: 300 mg, 2x/day
     Route: 048
     Dates: start: 20101101
  2. DIAZEPAM [Concomitant]
     Dosage: at night
     Route: 048
  3. AMITRIPTYLINE [Concomitant]
     Dosage: at night
     Route: 048
  4. FENTANYL [Concomitant]
     Dosage: Apply one every 3 days. 25ug/hour
     Route: 062
  5. HYDROCORTISONE [Concomitant]
     Dosage: 20mg at 8am + 6pm, 10mg at lunchtime
     Route: 048
  6. QUININE SULPHATE [Concomitant]
     Dosage: at night
     Route: 048
  7. ACETYLSALICYLIC ACID [Concomitant]
     Dosage: morning
     Route: 048
  8. OMEPRAZOLE [Concomitant]
     Dosage: morning
     Route: 048
  9. PARACETAMOL [Concomitant]
     Dosage: 1g max 4 times a day. when necessary
     Route: 048
  10. CYCLIZINE [Concomitant]
     Dosage: when necessary
     Route: 048

REACTIONS (6)
  - Loss of consciousness [Recovering/Resolving]
  - Urinary incontinence [Unknown]
  - Dysphagia [Recovering/Resolving]
  - Unresponsive to stimuli [Unknown]
  - Petit mal epilepsy [Unknown]
  - Coma scale abnormal [Unknown]
